FAERS Safety Report 21772910 (Version 1)
Quarter: 2022Q4

REPORT INFORMATION
  Report Type: Spontaneous
  Country: US (occurrence: US)
  Receive Date: 20221223
  Receipt Date: 20221223
  Transmission Date: 20230113
  Serious: No
  Sender: FDA-Public Use
  Company Number: US-GE HEALTHCARE-2022CSU008367

PATIENT
  Age: 10 Year
  Sex: Male
  Weight: 43.9 kg

DRUGS (6)
  1. SUCCIMER [Suspect]
     Active Substance: SUCCIMER
     Indication: Renal scan
     Dosage: 2.26 MCI VIA RIGHT ARM IV, ONCE
     Route: 042
     Dates: start: 20221116, end: 20221116
  2. SUCCIMER [Suspect]
     Active Substance: SUCCIMER
     Indication: Product used for unknown indication
  3. TECHNETIUM TC 99M SUCCIMER [Concomitant]
     Indication: Renal scan
     Dosage: UNK, SINGLE
  4. TECHNETIUM TC 99M SUCCIMER [Concomitant]
     Indication: Product used for unknown indication
  5. METHYLPHENIDATE HYDROCHLORIDE [Concomitant]
     Active Substance: METHYLPHENIDATE HYDROCHLORIDE
     Dosage: 5 MG
     Route: 048
     Dates: start: 20200721
  6. CLONIDINE [Concomitant]
     Active Substance: CLONIDINE
     Dosage: 0.1 MG
     Route: 048
     Dates: start: 20221004

REACTIONS (2)
  - Drug ineffective [Recovered/Resolved]
  - No adverse event [Recovered/Resolved]

NARRATIVE: CASE EVENT DATE: 20221116
